FAERS Safety Report 19791150 (Version 4)
Quarter: 2021Q4

REPORT INFORMATION
  Report Type: Report from Study
  Country: CO (occurrence: CO)
  Receive Date: 20210906
  Receipt Date: 20211231
  Transmission Date: 20220303
  Serious: Yes (Other)
  Sender: FDA-Public Use
  Company Number: CO-ABBVIE-21K-036-4068492-00

PATIENT
  Sex: Female
  Weight: 40 kg

DRUGS (2)
  1. HUMIRA [Suspect]
     Active Substance: ADALIMUMAB
     Indication: Rheumatoid arthritis
     Route: 058
     Dates: end: 20211208
  2. HUMIRA [Suspect]
     Active Substance: ADALIMUMAB
     Indication: Rheumatoid arthritis
     Route: 058
     Dates: start: 20130302

REACTIONS (14)
  - Visual acuity reduced [Recovering/Resolving]
  - Vision blurred [Recovering/Resolving]
  - Cataract [Recovering/Resolving]
  - Eye disorder [Recovering/Resolving]
  - Eye disorder [Recovering/Resolving]
  - Trigeminal nerve disorder [Recovering/Resolving]
  - Pain in jaw [Recovering/Resolving]
  - Oral pain [Recovered/Resolved]
  - Body height decreased [Recovering/Resolving]
  - Weight decreased [Recovering/Resolving]
  - Hypophagia [Unknown]
  - Insomnia [Recovering/Resolving]
  - Lacrimation increased [Recovering/Resolving]
  - Visual impairment [Recovering/Resolving]

NARRATIVE: CASE EVENT DATE: 20200101
